FAERS Safety Report 22386719 (Version 1)
Quarter: 2023Q2

REPORT INFORMATION
  Report Type: Spontaneous
  Country: US (occurrence: US)
  Receive Date: 20230531
  Receipt Date: 20230531
  Transmission Date: 20230722
  Serious: No
  Sender: FDA-Public Use
  Company Number: US-ChurchDwight-2023-CDW-00906

PATIENT

DRUGS (1)
  1. ZICAM NOS [Suspect]
     Active Substance: ECHINACEA ANGUSTIFOLIA\HOMEOPATHICS\ZINC ACETATE\ZINC GLUCONATE OR HOMEOPATHICS\ZINC ACETATE\ZINC GL
     Indication: Product used for unknown indication
     Route: 045
     Dates: start: 20230520

REACTIONS (3)
  - Anosmia [Unknown]
  - Ageusia [Unknown]
  - Nasal discomfort [Unknown]

NARRATIVE: CASE EVENT DATE: 20230520
